FAERS Safety Report 8402622-X (Version None)
Quarter: 2012Q1

REPORT INFORMATION
  Report Type: 
  Country: None (occurrence: None)
  Receive Date: 20120323
  Receipt Date: 20110110
  Transmission Date: 20120608
  Serious: Yes (Hospitalization, Other)
  Sender: FDA-Public Use
  Company Number: 163-21880-10101982

PATIENT
  Age: 81 Year
  Sex: Female

DRUGS (3)
  1. REVLIMID [Suspect]
     Indication: MULTIPLE MYELOMA
     Dosage: 2515;10 MG, 1 IN 1 D, PO
     Route: 048
     Dates: start: 20100901
  2. REVLIMID [Suspect]
     Indication: MULTIPLE MYELOMA
     Dosage: 2515;10 MG, 1 IN 1 D, PO
     Route: 048
     Dates: start: 20100701, end: 20100101
  3. REVLIMID [Suspect]
     Indication: MULTIPLE MYELOMA
     Dosage: 2515;10 MG, 1 IN 1 D, PO
     Route: 048
     Dates: start: 20080401, end: 20080101

REACTIONS (3)
  - CYSTITIS [None]
  - PANCYTOPENIA [None]
  - MULTIPLE MYELOMA [None]
